FAERS Safety Report 9454055 (Version 1)
Quarter: 2013Q3

REPORT INFORMATION
  Report Type: Spontaneous
  Country: US (occurrence: US)
  Receive Date: 20130812
  Receipt Date: 20130812
  Transmission Date: 20140515
  Serious: No
  Sender: FDA-Public Use
  Company Number: US-THROMBOGENICS INC-JET-2013-148

PATIENT
  Sex: 0

DRUGS (8)
  1. JETREA [Suspect]
     Indication: VITREOUS ADHESIONS
     Dosage: 2.5 MG, ONE TIME DOSE
     Route: 031
     Dates: start: 20130514, end: 20130514
  2. SYNTHYROID [Concomitant]
     Indication: PRODUCT USED FOR UNKNOWN INDICATION
     Dosage: 88 MG, QD
  3. OMEPRAZOLE [Concomitant]
     Indication: PRODUCT USED FOR UNKNOWN INDICATION
     Dosage: 20 MG, QD
  4. LISINOPRIL [Concomitant]
     Indication: PRODUCT USED FOR UNKNOWN INDICATION
     Dosage: 10 MG, QD
  5. ATENOLOL [Concomitant]
     Indication: PRODUCT USED FOR UNKNOWN INDICATION
     Dosage: 50 MG, 1/2
  6. PREDNISONE [Concomitant]
     Indication: GOUT
     Dosage: 20 MG, QD, PRN
  7. CELEBREX [Concomitant]
     Indication: GOUT
     Dosage: 200 MG, QD, PRN
  8. LUMIGAN [Concomitant]
     Indication: PRODUCT USED FOR UNKNOWN INDICATION
     Dosage: UNK GTT, QHS

REACTIONS (5)
  - Visual acuity reduced transiently [Recovered/Resolved]
  - Photopsia [Recovered/Resolved]
  - Vitreous floaters [Recovered/Resolved]
  - Eye pain [Recovered/Resolved]
  - Loss of visual contrast sensitivity [Recovered/Resolved]
